FAERS Safety Report 5638056-0 (Version None)
Quarter: 2008Q1

REPORT INFORMATION
  Report Type: 
  Country: None (occurrence: None)
  Receive Date: 20080221
  Receipt Date: 20080207
  Transmission Date: 20080703
  Serious: Yes (Hospitalization)
  Sender: FDA-Public Use
  Company Number: 2008BI000991

PATIENT
  Age: 64 Year
  Sex: Female
  Weight: 98.4306 kg

DRUGS (3)
  1. AVONEX [Suspect]
     Indication: MULTIPLE SCLEROSIS
     Dosage: 30 UG; QW; IM
     Route: 030
     Dates: start: 20071001, end: 20071001
  2. INSULIN [Concomitant]
  3. MEDICATION NOS [Concomitant]

REACTIONS (2)
  - ABDOMINAL PAIN [None]
  - APPENDICITIS PERFORATED [None]
